FAERS Safety Report 21095919 (Version 4)
Quarter: 2024Q2

REPORT INFORMATION
  Report Type: Report from Study
  Country: US (occurrence: US)
  Receive Date: 20220718
  Receipt Date: 20240422
  Transmission Date: 20240716
  Serious: Yes (Other)
  Sender: FDA-Public Use
  Company Number: US-ABBVIE-22K-163-4471402-00

PATIENT
  Sex: Male

DRUGS (1)
  1. HUMIRA [Suspect]
     Active Substance: ADALIMUMAB
     Indication: Crohn^s disease
     Dosage: CITRATE FREE
     Route: 058
     Dates: start: 20180115

REACTIONS (6)
  - Brain neoplasm malignant [Not Recovered/Not Resolved]
  - Brain operation [Recovered/Resolved]
  - Fatigue [Recovering/Resolving]
  - Device related infection [Unknown]
  - Paralysis [Unknown]
  - Muscle mass [Unknown]

NARRATIVE: CASE EVENT DATE: 20220101
